FAERS Safety Report 8462755-9 (Version None)
Quarter: 2012Q2

REPORT INFORMATION
  Report Type: 
  Country: None (occurrence: None)
  Receive Date: 20120625
  Receipt Date: 20120615
  Transmission Date: 20120825
  Serious: Yes (Hospitalization, Other)
  Sender: FDA-Public Use
  Company Number: US-ROCHE-1064376

PATIENT
  Sex: Male

DRUGS (2)
  1. LUCENTIS [Suspect]
     Dates: start: 20110505, end: 20120103
  2. LUCENTIS [Suspect]
     Indication: PRODUCT USED FOR UNKNOWN INDICATION
     Route: 050
     Dates: start: 20110505, end: 20120301

REACTIONS (1)
  - MYOCARDIAL INFARCTION [None]
